FAERS Safety Report 12119393 (Version 1)
Quarter: 2016Q1

REPORT INFORMATION
  Report Type: Spontaneous
  Country: US (occurrence: US)
  Receive Date: 20160226
  Receipt Date: 20160226
  Transmission Date: 20160526
  Serious: No
  Sender: FDA-Public Use
  Company Number: US-BRISTOL-MYERS SQUIBB COMPANY-BMS-2016-014067

PATIENT
  Sex: Male

DRUGS (2)
  1. DAKLINZA [Suspect]
     Active Substance: DACLATASVIR
     Indication: HEPATITIS C VIRUS TEST
     Dosage: 60 MG, QD
     Route: 048
  2. SOVALDI [Interacting]
     Active Substance: SOFOSBUVIR
     Indication: HEPATITIS C VIRUS TEST
     Route: 065

REACTIONS (2)
  - Gastrooesophageal reflux disease [Unknown]
  - Drug interaction [Unknown]
